FAERS Safety Report 14154640 (Version 1)
Quarter: 2017Q4

REPORT INFORMATION
  Report Type: Spontaneous
  Country: US (occurrence: US)
  Receive Date: 20171102
  Receipt Date: 20171102
  Transmission Date: 20180321
  Serious: No
  Sender: FDA-Public Use
  Company Number: US-BIOGEN-2014BI120140

PATIENT
  Sex: Female

DRUGS (1)
  1. TECFIDERA [Suspect]
     Active Substance: DIMETHYL FUMARATE
     Indication: MULTIPLE SCLEROSIS
     Dosage: MAINTANENCE DOSE
     Route: 048
     Dates: start: 20131126

REACTIONS (5)
  - Malaise [Recovered/Resolved]
  - Drug ineffective [Recovered/Resolved]
  - Multiple sclerosis [Recovered/Resolved]
  - Multiple sclerosis relapse [Unknown]
  - Motor dysfunction [Unknown]
